FAERS Safety Report 10967438 (Version 1)
Quarter: 2015Q1

REPORT INFORMATION
  Report Type: Spontaneous
  Country: US (occurrence: US)
  Receive Date: 20150330
  Receipt Date: 20150330
  Transmission Date: 20150721
  Serious: No
  Sender: FDA-Public Use
  Company Number: US-ASTRAZENECA-2014SE31019

PATIENT
  Age: 63 Year
  Sex: Male
  Weight: 83.9 kg

DRUGS (2)
  1. NEXIUM [Suspect]
     Active Substance: ESOMEPRAZOLE MAGNESIUM
     Indication: GASTROOESOPHAGEAL REFLUX DISEASE
     Route: 048
     Dates: start: 2006
  2. ASPIRIN. [Concomitant]
     Active Substance: ASPIRIN
     Dosage: 81MG

REACTIONS (4)
  - Weight fluctuation [Not Recovered/Not Resolved]
  - Abnormal faeces [Recovered/Resolved]
  - Weight increased [Unknown]
  - Drug ineffective [Recovered/Resolved]

NARRATIVE: CASE EVENT DATE: 201402
